FAERS Safety Report 6113265-5 (Version None)
Quarter: 2009Q1

REPORT INFORMATION
  Report Type: 
  Country: None (occurrence: None)
  Receive Date: 20090312
  Receipt Date: 20060113
  Transmission Date: 20090719
  Serious: No
  Sender: FDA-Public Use
  Company Number: US-ABBOTT-08P-163-0456191-00

PATIENT

DRUGS (2)
  1. DIVALPROEX SODIUM [Suspect]
     Indication: DRUG EXPOSURE DURING PREGNANCY
     Route: 050
  2. DIVALPROEX SODIUM [Suspect]
     Indication: PATERNAL DRUGS AFFECTING FOETUS

REACTIONS (1)
  - PATERNAL DRUGS AFFECTING FOETUS [None]
